FAERS Safety Report 6032421-8 (Version None)
Quarter: 2008Q4

REPORT INFORMATION
  Report Type: 
  Country: None (occurrence: None)
  Receive Date: 20081222
  Receipt Date: 20080904
  Transmission Date: 20090506
  Serious: No
  Sender: FDA-Public Use
  Company Number: US-WYE-H05918708

PATIENT
  Age: 73 Year
  Sex: Female
  Weight: 48.12 kg

DRUGS (6)
  1. PRISTIQ [Suspect]
     Indication: DEPRESSION
     Dosage: 50 MG 1X PER 1 DAY, ORAL
     Route: 048
     Dates: start: 20080701, end: 20080829
  2. ASPIRIN [Concomitant]
  3. PLAVIX [Concomitant]
  4. FISH OIL, HYDROGENATED (FISH OIL, HYDROGENATED) [Concomitant]
  5. PRAVASTATIN [Concomitant]
  6. ENALAPRIL MALEATE [Concomitant]

REACTIONS (4)
  - ASTHENIA [None]
  - ERYTHEMA [None]
  - PAIN [None]
  - SWELLING [None]
